FAERS Safety Report 10053180 (Version 2)
Quarter: 2014Q2

REPORT INFORMATION
  Report Type: Spontaneous
  Country: JP (occurrence: JP)
  Receive Date: 20140402
  Receipt Date: 20140605
  Transmission Date: 20141212
  Serious: Yes (Hospitalization)
  Sender: FDA-Public Use
  Company Number: PHHY2014JP038283

PATIENT
  Age: 77 Year
  Sex: Female

DRUGS (3)
  1. RIVASTIGMIN [Suspect]
     Indication: DEMENTIA WITH LEWY BODIES
     Dosage: 4.5 MG, ONCE A DAY (1.9 MG/24 HOURS)
     Route: 062
  2. RIVASTIGMIN [Suspect]
     Dosage: 9 MG ONCE A DAY (4.6MG/24 HOURS)
     Route: 062
  3. SEROQUEL [Concomitant]
     Dosage: UNK UKN, UNK

REACTIONS (5)
  - Hallucination, visual [Unknown]
  - Delirium [Unknown]
  - Off label use [Unknown]
  - Delusion [Unknown]
  - Aphagia [Unknown]
